FAERS Safety Report 25186144 (Version 1)
Quarter: 2025Q2

REPORT INFORMATION
  Report Type: Spontaneous
  Country: US (occurrence: US)
  Receive Date: 20250410
  Receipt Date: 20250410
  Transmission Date: 20250717
  Serious: No
  Sender: BLUEPRINT MEDICINES
  Company Number: US-Blueprint Medicines Corporation-2025-AER-00689

PATIENT
  Age: 58 Year
  Sex: Female

DRUGS (1)
  1. AYVAKIT [Suspect]
     Active Substance: AVAPRITINIB
     Indication: Systemic mastocytosis
     Route: 048
     Dates: start: 20241228

REACTIONS (5)
  - Food intolerance [Unknown]
  - Insomnia [Unknown]
  - Decreased appetite [Unknown]
  - Osteopenia [Unknown]
  - Faecal volume decreased [Unknown]
